FAERS Safety Report 7139442-2 (Version None)
Quarter: 2010Q4

REPORT INFORMATION
  Report Type: 
  Country: None (occurrence: None)
  Receive Date: 20101206
  Receipt Date: 20101125
  Transmission Date: 20110411
  Serious: Yes (Hospitalization, Other)
  Sender: FDA-Public Use
  Company Number: BR-PFIZER INC-2010157722

PATIENT
  Age: 66 Year
  Sex: Male
  Weight: 85.3 kg

DRUGS (15)
  1. IBUPROFEN [Suspect]
     Indication: OSTEOARTHRITIS
     Dosage: LOW DOSE, MG UNITS, 3X/DAY
     Route: 048
     Dates: start: 20091222, end: 20100926
  2. NAPROXEN [Suspect]
     Indication: OSTEOARTHRITIS
     Dosage: LOW DOSE, MG UNITS, 3X/DAY
     Route: 048
     Dates: start: 20091222, end: 20100926
  3. BLINDED *NO SUBJECT DRUG [Suspect]
     Indication: OSTEOARTHRITIS
     Dosage: LOW DOSE, MG UNITS, 3X/DAY
     Route: 048
     Dates: start: 20091222, end: 20100926
  4. BLINDED *PLACEBO [Suspect]
     Indication: OSTEOARTHRITIS
     Dosage: LOW DOSE, MG UNITS, 3X/DAY
     Route: 048
     Dates: start: 20091222, end: 20100926
  5. CELECOXIB [Suspect]
     Indication: OSTEOARTHRITIS
     Dosage: LOW DOSE, MG UNITS, 3X/DAY
     Route: 048
     Dates: start: 20091222, end: 20100926
  6. IBUPROFEN [Suspect]
     Dosage: LOW DOSE, MG UNITS, 3X/DAY
     Route: 048
     Dates: start: 20091222, end: 20100926
  7. NAPROXEN [Suspect]
     Dosage: LOW DOSE, MG UNITS, 3X/DAY
     Route: 048
     Dates: start: 20091222, end: 20100926
  8. IBUPROFEN [Suspect]
     Indication: RHEUMATOID ARTHRITIS
  9. NAPROXEN [Suspect]
     Indication: RHEUMATOID ARTHRITIS
  10. BLINDED *NO SUBJECT DRUG [Suspect]
     Indication: RHEUMATOID ARTHRITIS
  11. BLINDED *PLACEBO [Suspect]
     Indication: RHEUMATOID ARTHRITIS
  12. CELECOXIB [Suspect]
     Indication: RHEUMATOID ARTHRITIS
  13. IBUPROFEN [Suspect]
  14. NAPROXEN [Suspect]
  15. NEXIUM [Concomitant]
     Indication: GASTRITIS PROPHYLAXIS
     Dosage: 20 MG, DAILY
     Route: 048
     Dates: start: 20091222, end: 20100926

REACTIONS (1)
  - ARTERIAL THROMBOSIS [None]
